FAERS Safety Report 9947675 (Version 1)
Quarter: 2014Q1

REPORT INFORMATION
  Report Type: Report from Study
  Country: US (occurrence: US)
  Receive Date: 20140303
  Receipt Date: 20140303
  Transmission Date: 20141002
  Serious: No
  Sender: FDA-Public Use
  Company Number: US-ABBVIE-13P-163-1062827-00

PATIENT
  Age: 37 Year
  Sex: Female

DRUGS (11)
  1. HUMIRA [Suspect]
     Indication: CROHN^S DISEASE
     Dates: start: 20121009, end: 20121009
  2. HUMIRA [Suspect]
     Dates: start: 20121024, end: 20121024
  3. HUMIRA [Suspect]
     Dates: start: 20121024
  4. PENTASA [Concomitant]
     Indication: CROHN^S DISEASE
  5. MULTI-VITAMIN [Concomitant]
     Indication: PRODUCT USED FOR UNKNOWN INDICATION
     Dosage: DAILY
  6. IRON [Concomitant]
     Indication: BLOOD IRON DECREASED
     Dosage: DAILY
  7. PRILOSEC [Concomitant]
     Indication: GASTROOESOPHAGEAL REFLUX DISEASE
     Dosage: DAILY
  8. VITAMIN B-12 [Concomitant]
     Indication: VITAMIN B12 DEFICIENCY
     Route: 050
  9. FOLIC ACID [Concomitant]
     Indication: PRODUCT USED FOR UNKNOWN INDICATION
     Dosage: 1 MG DAILY
  10. LORATADINE [Concomitant]
     Indication: HYPERSENSITIVITY
     Dosage: DAILY
  11. VITAMIN D WITH CALCIUM [Concomitant]
     Indication: PRODUCT USED FOR UNKNOWN INDICATION
     Dosage: 500 MG DAILY

REACTIONS (3)
  - Abdominal pain [Recovering/Resolving]
  - Injection site bruising [Recovering/Resolving]
  - Injection site haemorrhage [Unknown]
